FAERS Safety Report 9641673 (Version 2)
Quarter: 2013Q4

REPORT INFORMATION
  Report Type: Spontaneous
  Country: DE (occurrence: DE)
  Receive Date: 20131023
  Receipt Date: 20131122
  Transmission Date: 20140711
  Serious: Yes (Life-Threatening, Hospitalization)
  Sender: FDA-Public Use
  Company Number: DE-ASTRAZENECA-2013SE76339

PATIENT
  Age: 20027 Day
  Sex: Male
  Weight: 85 kg

DRUGS (8)
  1. BRILIQUE [Suspect]
     Indication: ACUTE CORONARY SYNDROME
     Route: 048
     Dates: start: 20120430
  2. BRILIQUE [Suspect]
     Indication: ACUTE CORONARY SYNDROME
     Route: 048
  3. AGGRASTAT [Concomitant]
  4. ASS [Concomitant]
  5. BETA BLOCKER [Concomitant]
  6. CSE INHIBITOR [Concomitant]
  7. ACE INHIBITOR [Concomitant]
  8. METFORMIN [Concomitant]

REACTIONS (1)
  - Device occlusion [Recovered/Resolved]
